FAERS Safety Report 20752430 (Version 1)
Quarter: 2022Q2

REPORT INFORMATION
  Report Type: Spontaneous
  Country: US (occurrence: None)
  Receive Date: 20220426
  Receipt Date: 20220426
  Transmission Date: 20220720
  Serious: No
  Sender: FDA-Public Use
  Company Number: US-ROCHE-2839235

PATIENT
  Age: 79 Year
  Sex: Male

DRUGS (3)
  1. ESBRIET [Suspect]
     Active Substance: PIRFENIDONE
     Indication: Idiopathic pulmonary fibrosis
     Dosage: 1 TABLETS THREE TIMES A DAY
     Route: 065
     Dates: start: 20210520
  2. ESBRIET [Suspect]
     Active Substance: PIRFENIDONE
     Dosage: 2 TABLETS THREE TIMES A DAY
     Route: 065
     Dates: start: 20210527
  3. ESBRIET [Suspect]
     Active Substance: PIRFENIDONE
     Route: 048
     Dates: start: 202105, end: 202106

REACTIONS (3)
  - Asthenia [Unknown]
  - Hypotension [Unknown]
  - Dizziness [Unknown]

NARRATIVE: CASE EVENT DATE: 20210602
